FAERS Safety Report 10635609 (Version 2)
Quarter: 2014Q4

REPORT INFORMATION
  Report Type: Spontaneous
  Country: DE (occurrence: DE)
  Receive Date: 20141205
  Receipt Date: 20141205
  Transmission Date: 20150529
  Serious: No
  Sender: FDA-Public Use
  Company Number: DE-ALLERGAN-1424335US

PATIENT
  Age: 50 Year
  Sex: Male

DRUGS (2)
  1. OZURDEX [Suspect]
     Active Substance: DEXAMETHASONE
     Indication: GLAUCOMA
     Dosage: 0.7 MG, SINGLE
     Route: 031
     Dates: start: 201411, end: 201411
  2. OZURDEX [Suspect]
     Active Substance: DEXAMETHASONE
     Indication: MACULAR OEDEMA

REACTIONS (5)
  - Off label use [Unknown]
  - Eye haemorrhage [Recovered/Resolved]
  - Visual acuity reduced [Recovering/Resolving]
  - Intraocular pressure increased [Recovering/Resolving]
  - Blood glucose increased [Recovering/Resolving]

NARRATIVE: CASE EVENT DATE: 20141106
